FAERS Safety Report 15845163 (Version 4)
Quarter: 2019Q2

REPORT INFORMATION
  Report Type: Report from Study
  Country: GB (occurrence: GB)
  Receive Date: 20190119
  Receipt Date: 20190410
  Transmission Date: 20190711
  Serious: Yes (Life-Threatening, Hospitalization, Other)
  Sender: FDA-Public Use
  Company Number: GB-AUROBINDO-AUR-APL-2019-002280

PATIENT

DRUGS (1)
  1. PARACETAMOL TABLET [Suspect]
     Active Substance: ACETAMINOPHEN
     Indication: PRODUCT USED FOR UNKNOWN INDICATION
     Dosage: UNK, 16-62 GRAMS
     Route: 065

REACTIONS (6)
  - Acute hepatic failure [Recovered/Resolved]
  - Encephalopathy [Unknown]
  - Intentional overdose [Recovered/Resolved]
  - Overdose [Recovered/Resolved]
  - Cytomegalovirus test positive [Recovered/Resolved]
  - Cytomegalovirus infection [Unknown]
